FAERS Safety Report 25926161 (Version 1)
Quarter: 2025Q4

REPORT INFORMATION
  Report Type: Report from Study
  Country: US (occurrence: US)
  Receive Date: 20251015
  Receipt Date: 20251015
  Transmission Date: 20260118
  Serious: Yes (Other)
  Sender: ALEXION PHARMACEUTICALS
  Company Number: US-ASTRAZENECA-202509USA004042US

PATIENT
  Sex: Female

DRUGS (2)
  1. OLAPARIB [Suspect]
     Active Substance: OLAPARIB
     Indication: Ovarian cancer
     Dosage: 300 MG ,BID
  2. OLAPARIB [Suspect]
     Active Substance: OLAPARIB
     Dosage: 1 TABLET BID FOR 7 DAYS, 1 TABLET IN THE MORNING AND 2 TABLETS IN THE EVENING FOR 7 DAYS, 2 TABLETS BID FOR 14 DAYS

REACTIONS (4)
  - Neuropathy peripheral [Unknown]
  - Anxiety [Unknown]
  - Arthralgia [Unknown]
  - Brain fog [Unknown]
